FAERS Safety Report 8450935-8 (Version None)
Quarter: 2012Q2

REPORT INFORMATION
  Report Type: 
  Country: None (occurrence: None)
  Receive Date: 20120615
  Receipt Date: 20120615
  Transmission Date: 20120825
  Serious: No
  Sender: FDA-Public Use
  Company Number: None

PATIENT
  Sex: Female
  Weight: 62.3 kg

DRUGS (1)
  1. CREST PRO-HEALTH CPC ANTI GINGIVITIS / ANTI PLAQU 4 TEASPOONFULLS OF 0 [Suspect]
     Dosage: 4 TEASPOONS 2XDAY ORAL
     Route: 048
     Dates: start: 20120610

REACTIONS (2)
  - PRODUCT PACKAGING ISSUE [None]
  - PRODUCT LABEL ISSUE [None]
